FAERS Safety Report 10956784 (Version 1)
Quarter: 2015Q1

REPORT INFORMATION
  Report Type: Spontaneous
  Country: US (occurrence: US)
  Receive Date: 20150326
  Receipt Date: 20150326
  Transmission Date: 20150721
  Serious: No
  Sender: FDA-Public Use
  Company Number: US-MYLANLABS-2014M1001843

PATIENT
  Sex: Female
  Weight: 52.15 kg

DRUGS (22)
  1. EMSAM [Suspect]
     Active Substance: SELEGILINE
     Indication: MAJOR DEPRESSION
     Dosage: UNK
     Route: 062
  2. EMSAM [Suspect]
     Active Substance: SELEGILINE
     Route: 062
  3. ESTRADIOL. [Concomitant]
     Active Substance: ESTRADIOL
     Indication: HORMONE REPLACEMENT THERAPY
  4. ZYRTEC [Concomitant]
     Active Substance: CETIRIZINE HYDROCHLORIDE
     Indication: HYPERSENSITIVITY
  5. PROBIOTIC                          /06395501/ [Concomitant]
     Dosage: UNK
  6. EMSAM [Suspect]
     Active Substance: SELEGILINE
     Indication: DEPRESSION
  7. EMSAM [Suspect]
     Active Substance: SELEGILINE
     Indication: DEPRESSION
  8. EMSAM [Suspect]
     Active Substance: SELEGILINE
     Indication: MAJOR DEPRESSION
  9. UBIQUINOL [Concomitant]
     Dosage: UNK
  10. EMSAM [Suspect]
     Active Substance: SELEGILINE
     Dosage: 12 MG, QD
     Route: 062
     Dates: start: 20140724
  11. RESTASIS [Concomitant]
     Active Substance: CYCLOSPORINE
     Indication: DRY EYE
     Dosage: UNK
  12. MAGNESIUM [Concomitant]
     Active Substance: MAGNESIUM
     Dosage: UNK
  13. VITAMIN D3 [Concomitant]
     Active Substance: CHOLECALCIFEROL
     Dosage: UNK
  14. MELATONIN [Concomitant]
     Active Substance: MELATONIN
     Indication: SLEEP DISORDER
  15. ENZYME [Concomitant]
     Dosage: UNK
  16. MULTIVITAMIN                       /00097801/ [Concomitant]
     Active Substance: VITAMINS
     Dosage: UNK
  17. EMSAM [Suspect]
     Active Substance: SELEGILINE
     Indication: MAJOR DEPRESSION
  18. SIMVASTATIN. [Concomitant]
     Active Substance: SIMVASTATIN
     Indication: BLOOD CHOLESTEROL INCREASED
     Dosage: 20 MG, QD
  19. CLONAZEPAM. [Concomitant]
     Active Substance: CLONAZEPAM
     Indication: ANXIETY
     Dosage: UNK
  20. EMSAM [Suspect]
     Active Substance: SELEGILINE
     Indication: DEPRESSION
  21. FISH OIL [Concomitant]
     Active Substance: FISH OIL
  22. CALCIUM CITRATE [Concomitant]
     Active Substance: CALCIUM CITRATE
     Indication: BONE DISORDER
     Dosage: UNK

REACTIONS (4)
  - Skin lesion [Not Recovered/Not Resolved]
  - Application site irritation [Not Recovered/Not Resolved]
  - Application site erythema [Not Recovered/Not Resolved]
  - Application site pruritus [Not Recovered/Not Resolved]
